FAERS Safety Report 4561611-6 (Version None)
Quarter: 2005Q1

REPORT INFORMATION
  Report Type: 
  Country: None (occurrence: None)
  Receive Date: 20050126
  Receipt Date: 20050119
  Transmission Date: 20050727
  Serious: Yes (Other)
  Sender: FDA-Public Use
  Company Number: CA-GLAXOSMITHKLINE-A0541360A

PATIENT
  Age: 74 Year
  Sex: Female

DRUGS (2)
  1. LEUKERAN [Suspect]
     Indication: RHEUMATOID ARTHRITIS
     Dosage: 1TAB TWICE PER DAY
     Route: 048
     Dates: start: 20030101
  2. PREDNISONE [Concomitant]

REACTIONS (3)
  - CARDIAC PACEMAKER INSERTION [None]
  - FATIGUE [None]
  - HAEMORRHAGE [None]
